FAERS Safety Report 24753046 (Version 2)
Quarter: 2024Q4

REPORT INFORMATION
  Report Type: Spontaneous
  Country: US (occurrence: US)
  Receive Date: 20241219
  Receipt Date: 20241220
  Transmission Date: 20250114
  Serious: Yes (Hospitalization)
  Sender: MYLAN
  Company Number: US-MYLANLABS-2024M1112046

PATIENT
  Age: 37 Year
  Sex: Female

DRUGS (3)
  1. PREDNISONE [Interacting]
     Active Substance: PREDNISONE
     Indication: Drug therapy
     Dosage: 40 MILLIGRAM
     Route: 065
  2. TERBINAFINE [Interacting]
     Active Substance: TERBINAFINE\TERBINAFINE HYDROCHLORIDE
     Indication: Drug therapy
     Dosage: 250 MILLIGRAM, QD
     Route: 065
  3. HYDROXYCHLOROQUINE [Interacting]
     Active Substance: HYDROXYCHLOROQUINE
     Indication: Drug therapy
     Dosage: 200 MILLIGRAM
     Route: 065

REACTIONS (2)
  - Drug interaction [Recovering/Resolving]
  - Psoriasis [Recovering/Resolving]
